FAERS Safety Report 24811528 (Version 1)
Quarter: 2025Q1

REPORT INFORMATION
  Report Type: Spontaneous
  Country: CN (occurrence: CN)
  Receive Date: 20250106
  Receipt Date: 20250106
  Transmission Date: 20250408
  Serious: Yes (Hospitalization, Other)
  Sender: NOVARTIS
  Company Number: CN-002147023-NVSC2024CN247683

PATIENT
  Age: 9 Year
  Sex: Male
  Weight: 22 kg

DRUGS (6)
  1. TRILEPTAL [Suspect]
     Active Substance: OXCARBAZEPINE
     Indication: Encephalitis autoimmune
     Dosage: 120 MG, BID (Q12H)
     Route: 048
     Dates: start: 20241113, end: 20241117
  2. TRILEPTAL [Suspect]
     Active Substance: OXCARBAZEPINE
     Dosage: 240 MG, BID (Q12H)
     Route: 048
     Dates: start: 20241118, end: 20241121
  3. TRILEPTAL [Suspect]
     Active Substance: OXCARBAZEPINE
     Dosage: 300 MG, Q12H
     Route: 048
     Dates: start: 20241122, end: 20241126
  4. TRILEPTAL [Suspect]
     Active Substance: OXCARBAZEPINE
     Dosage: 360 MG, Q12H
     Route: 048
     Dates: start: 20241127, end: 20241130
  5. LEVETIRACETAM [Suspect]
     Active Substance: LEVETIRACETAM
     Indication: Encephalitis autoimmune
     Dosage: 480 MG, BID (Q12H) (INJECTION CONCENTRATE SOLUTION)
     Route: 041
     Dates: start: 20241111, end: 20241121
  6. LEVETIRACETAM [Suspect]
     Active Substance: LEVETIRACETAM
     Dosage: 720 MG, Q12H (INJECTION CONCENTRATE SOLUTION)
     Route: 041
     Dates: start: 20241122, end: 20241130

REACTIONS (8)
  - Pyrexia [Unknown]
  - Seizure [Unknown]
  - Listless [Unknown]
  - Status epilepticus [Unknown]
  - Liver injury [Recovering/Resolving]
  - Alanine aminotransferase increased [Recovering/Resolving]
  - Aspartate aminotransferase increased [Recovering/Resolving]
  - Product use in unapproved indication [Unknown]

NARRATIVE: CASE EVENT DATE: 20241130
